FAERS Safety Report 7913829-X (Version None)
Quarter: 2011Q4

REPORT INFORMATION
  Report Type: 
  Country: None (occurrence: None)
  Receive Date: 20111115
  Receipt Date: 20111103
  Transmission Date: 20120403
  Serious: No
  Sender: FDA-Public Use
  Company Number: US-JNJFOC-20111010688

PATIENT
  Sex: Male
  Weight: 104.33 kg

DRUGS (4)
  1. UNKNOWN MEDICATION [Concomitant]
     Indication: PRODUCT USED FOR UNKNOWN INDICATION
     Dosage: 8 UNSPECIFIED MEDICATION
     Route: 065
  2. INSULIN [Concomitant]
     Indication: DIABETES MELLITUS
     Route: 065
  3. FENTANYL [Suspect]
     Indication: BACK PAIN
     Route: 062
     Dates: start: 20110101
  4. UNKNOWN MEDICATION [Concomitant]
     Indication: NEPHROLITHIASIS
     Route: 065

REACTIONS (1)
  - WRONG TECHNIQUE IN DRUG USAGE PROCESS [None]
